FAERS Safety Report 5795629-2 (Version None)
Quarter: 2008Q2

REPORT INFORMATION
  Report Type: 
  Country: None (occurrence: None)
  Receive Date: 20080630
  Receipt Date: 20080617
  Transmission Date: 20081010
  Serious: Yes (Other)
  Sender: FDA-Public Use
  Company Number: NO-MERCK-0806NOR00008

PATIENT
  Age: 65 Year
  Sex: Male

DRUGS (9)
  1. COZAAR [Suspect]
     Indication: HYPERTENSION
     Route: 048
     Dates: start: 20080101
  2. ALLOPURINOL [Concomitant]
     Indication: PODAGRA
     Route: 048
  3. INSULIN ASPART [Suspect]
     Indication: DIABETES INSIPIDUS
     Route: 058
  4. INSULIN ASPART, BIPHASIC ISOPHANE [INJECTION] [Suspect]
     Indication: DIABETES INSIPIDUS
     Route: 058
  5. FUROSEMIDE [Concomitant]
     Indication: HYPERTENSION
     Route: 048
     Dates: start: 20020101
  6. SPIRONOLACTONE [Concomitant]
     Indication: HYPERTENSION
     Route: 048
  7. ALFACALCIDOL [Concomitant]
     Indication: RENAL FAILURE
     Route: 048
  8. EXENATIDE [Suspect]
     Indication: DIABETES MELLITUS
     Route: 058
     Dates: start: 20080201, end: 20080404
  9. DARBEPOETIN ALFA [Concomitant]
     Indication: RENAL FAILURE CHRONIC
     Route: 065
     Dates: start: 20070101

REACTIONS (2)
  - DRUG INTERACTION [None]
  - RENAL FAILURE [None]
